FAERS Safety Report 4302743-7 (Version None)
Quarter: 2004Q1

REPORT INFORMATION
  Report Type: 
  Country: None (occurrence: None)
  Receive Date: 20040224
  Receipt Date: 20040213
  Transmission Date: 20041129
  Serious: Yes (Hospitalization)
  Sender: FDA-Public Use
  Company Number: PHBS2004FI02137

PATIENT
  Age: 57 Year
  Sex: Female

DRUGS (7)
  1. LEPONEX [Suspect]
     Indication: PSYCHOTIC DISORDER
     Dosage: 500 MG/D
     Route: 048
     Dates: start: 20020709
  2. LAMICTAL ^WELLCOME^ [Suspect]
     Indication: DEPRESSION
     Dosage: 150 MG/D
     Route: 048
     Dates: start: 20030711
  3. CIPRAMIL [Concomitant]
     Indication: DEPRESSION
     Dosage: 60 MG/D
     Route: 048
     Dates: start: 20021105
  4. STESOLID [Concomitant]
     Indication: ANXIETY
     Dosage: 35 MG/D
     Route: 048
     Dates: start: 20010821
  5. FEMOSTON CONTI [Concomitant]
     Route: 065
     Dates: start: 20030709
  6. MAGNESIAMAITO [Concomitant]
     Dosage: 20 ML/D
     Route: 048
  7. SENIKOLP [Concomitant]
     Route: 065

REACTIONS (3)
  - DRUG INTERACTION [None]
  - DRUG TOXICITY [None]
  - REGRESSIVE BEHAVIOUR [None]
